FAERS Safety Report 9812545 (Version 1)
Quarter: 2014Q1

REPORT INFORMATION
  Report Type: Other
  Country: US (occurrence: US)
  Receive Date: 20140113
  Receipt Date: 20140113
  Transmission Date: 20141002
  Serious: Yes (Hospitalization)
  Sender: FDA-Public Use
  Company Number: US-BRISTOL-MYERS SQUIBB COMPANY-19981497

PATIENT
  Age: 17 Year
  Sex: Female
  Weight: 38.7 kg

DRUGS (3)
  1. TOBRAMYCIN SULFATE [Suspect]
  2. FUROSEMIDE [Suspect]
  3. TACROLIMUS [Suspect]

REACTIONS (2)
  - Renal failure acute [Unknown]
  - Renal tubular necrosis [None]
